FAERS Safety Report 7982208-1 (Version None)
Quarter: 2011Q4

REPORT INFORMATION
  Report Type: 
  Country: None (occurrence: None)
  Receive Date: 20111215
  Receipt Date: 20111206
  Transmission Date: 20120403
  Serious: Yes (Hospitalization, Other)
  Sender: FDA-Public Use
  Company Number: US-ELI_LILLY_AND_COMPANY-US201110002834

PATIENT
  Sex: Female

DRUGS (14)
  1. AMARYL [Concomitant]
     Indication: TYPE 2 DIABETES MELLITUS
     Dosage: UNK, BID
     Route: 048
  2. VICTOZA [Concomitant]
     Indication: TYPE 2 DIABETES MELLITUS
     Dosage: 5 UG, BID
     Dates: start: 20071030
  3. LASIX [Concomitant]
     Dosage: 20 MG, UNK
  4. LESCOL XL [Concomitant]
  5. ALTACE [Concomitant]
  6. SYNTHROID [Concomitant]
     Dosage: 0.15 MG, UNK
  7. BYETTA [Suspect]
     Indication: TYPE 2 DIABETES MELLITUS
     Dosage: UNK
     Route: 058
     Dates: end: 20100501
  8. LIPITOR [Concomitant]
     Indication: PRODUCT USED FOR UNKNOWN INDICATION
     Dosage: UNK
     Route: 048
  9. BYETTA [Suspect]
     Dosage: 10 UG, BID
     Route: 058
     Dates: start: 20101201
  10. VICTOZA [Concomitant]
     Dosage: 10 UG, BID
     Dates: start: 20071101, end: 20100521
  11. HUMULIN 70/30 [Concomitant]
     Dosage: 20 U, UNK
  12. METFORMIN HCL [Concomitant]
     Indication: TYPE 2 DIABETES MELLITUS
     Dosage: 1000 MG, UNK
     Route: 048
     Dates: end: 20111008
  13. VICTOZA [Concomitant]
     Dosage: 10 UG, BID
     Dates: start: 20110214
  14. MOBIC [Concomitant]
     Dosage: 15 MG, UNK

REACTIONS (6)
  - DEHYDRATION [None]
  - RENAL FAILURE ACUTE [None]
  - NAUSEA [None]
  - ABDOMINAL PAIN [None]
  - HYPOPHAGIA [None]
  - VOMITING [None]
